FAERS Safety Report 5208852-2 (Version None)
Quarter: 2007Q1

REPORT INFORMATION
  Report Type: 
  Country: None (occurrence: None)
  Receive Date: 20070116
  Receipt Date: 20070110
  Transmission Date: 20070707
  Serious: Yes (Hospitalization)
  Sender: FDA-Public Use
  Company Number: FR-BRISTOL-MYERS SQUIBB COMPANY-13639919

PATIENT
  Age: 37 Year
  Sex: Male

DRUGS (5)
  1. AMIKLIN POWDER [Suspect]
     Indication: URINARY TRACT INFECTION
     Route: 042
  2. FORTUM [Suspect]
     Indication: URINARY TRACT INFECTION
     Route: 042
     Dates: start: 20060104, end: 20060110
  3. SPASFON [Concomitant]
  4. FLAGYL [Concomitant]
  5. DEBRIDAT [Concomitant]

REACTIONS (1)
  - PSEUDOMEMBRANOUS COLITIS [None]
